FAERS Safety Report 18290624 (Version 1)
Quarter: 2020Q3

REPORT INFORMATION
  Report Type: Spontaneous
  Country: US (occurrence: US)
  Receive Date: 20200921
  Receipt Date: 20200921
  Transmission Date: 20201103
  Serious: No
  Sender: FDA-Public Use
  Company Number: US-BAYER-2020-201447

PATIENT
  Age: 6 Decade
  Sex: Female

DRUGS (2)
  1. VITAMIN D [VITAMIN D NOS] [Concomitant]
     Active Substance: VITAMIN D NOS
     Dosage: UNK
  2. ESTRADIOL HEMIHYDRATE [Suspect]
     Active Substance: ESTRADIOL HEMIHYDRATE
     Dosage: UNK
     Route: 062
     Dates: start: 202003

REACTIONS (3)
  - Application site erythema [None]
  - Application site pain [None]
  - Application site rash [None]

NARRATIVE: CASE EVENT DATE: 2020
